FAERS Safety Report 6901435-5 (Version None)
Quarter: 2010Q3

REPORT INFORMATION
  Report Type: 
  Country: None (occurrence: None)
  Receive Date: 20100803
  Receipt Date: 20080125
  Transmission Date: 20110219
  Serious: Yes (Other)
  Sender: FDA-Public Use
  Company Number: US-PFIZER INC-2008008306

PATIENT
  Sex: Female

DRUGS (4)
  1. LYRICA [Suspect]
     Indication: MUSCULOSKELETAL PAIN
     Dates: start: 20080124
  2. LYRICA [Suspect]
     Indication: PAIN IN EXTREMITY
  3. ALL OTHER THERAPEUTIC PRODUCTS [Suspect]
  4. ALL OTHER THERAPEUTIC PRODUCTS [Concomitant]

REACTIONS (4)
  - CONFUSIONAL STATE [None]
  - ILL-DEFINED DISORDER [None]
  - SOMNOLENCE [None]
  - WEIGHT DECREASED [None]
